FAERS Safety Report 5206847-6 (Version None)
Quarter: 2006Q4

REPORT INFORMATION
  Report Type: 
  Country: None (occurrence: None)
  Receive Date: 20061026
  Receipt Date: 20060823
  Transmission Date: 20070319
  Serious: No
  Sender: FDA-Public Use
  Company Number: 2006103923

PATIENT
  Age: 54 Year
  Sex: Female

DRUGS (11)
  1. LYRICA [Suspect]
     Indication: PAIN
     Dosage: 75 MG (75 MG, 1 IN 1 D)
     Dates: start: 20060818
  2. PILOCARPINE [Concomitant]
  3. PREMPRO [Concomitant]
  4. DEPAKOTE [Concomitant]
  5. DIVALPROEX (VALPROIC ACID) [Concomitant]
  6. LEVOTHYROXINE SODIUM [Concomitant]
  7. HYDROCHLOROTHIAZIDE [Concomitant]
  8. LIPITOR [Concomitant]
  9. CASCARA TAB [Concomitant]
  10. IBUPROFEN [Concomitant]
  11. HYDROCODONE BITARTRATE [Concomitant]

REACTIONS (2)
  - GLOSSODYNIA [None]
  - THIRST [None]
